FAERS Safety Report 16035761 (Version 2)
Quarter: 2020Q1

REPORT INFORMATION
  Report Type: Report from Study
  Country: None (occurrence: CH)
  Receive Date: 20190305
  Receipt Date: 20200219
  Transmission Date: 20200409
  Serious: Yes (Hospitalization, Other)
  Sender: FDA-Public Use
  Company Number: CH-ABBVIE-18K-151-2582441-00

PATIENT
  Age: 41 Year
  Sex: Male
  Weight: 83 kg

DRUGS (3)
  1. DAFALGAN [Concomitant]
     Active Substance: ACETAMINOPHEN
     Indication: HEADACHE
     Dosage: AS NEEDED, RARELY
  2. HUMIRA [Suspect]
     Active Substance: ADALIMUMAB
     Indication: PSORIATIC ARTHROPATHY
     Route: 058
     Dates: end: 20190515
  3. HUMIRA [Suspect]
     Active Substance: ADALIMUMAB
     Indication: PSORIASIS
     Route: 058
     Dates: start: 20170802, end: 20181114

REACTIONS (20)
  - Monocyte count increased [Not Recovered/Not Resolved]
  - White blood cell count increased [Recovered/Resolved]
  - Blood creatinine increased [Recovered/Resolved]
  - Haematochezia [Unknown]
  - Internal fixation of fracture [Unknown]
  - Osteoarthritis [Unknown]
  - Cold sweat [Recovered/Resolved]
  - Spinal osteoarthritis [Recovered/Resolved]
  - Atrial fibrillation [Recovered/Resolved]
  - Tachycardia [Recovered/Resolved]
  - N-terminal prohormone brain natriuretic peptide increased [Recovered/Resolved]
  - Osteochondrosis [Recovered/Resolved]
  - Arteriosclerosis coronary artery [Recovered/Resolved]
  - Cough [Recovered/Resolved]
  - Bone disorder [Unknown]
  - Blood pressure increased [Recovered/Resolved]
  - Latent tuberculosis [Not Recovered/Not Resolved]
  - Joint effusion [Unknown]
  - Headache [Unknown]
  - Bronchitis [Recovered/Resolved]

NARRATIVE: CASE EVENT DATE: 20171115
